FAERS Safety Report 12580735 (Version 2)
Quarter: 2016Q3

REPORT INFORMATION
  Report Type: Report from Study
  Country: US (occurrence: US)
  Receive Date: 20160721
  Receipt Date: 20160804
  Transmission Date: 20161109
  Serious: No
  Sender: FDA-Public Use
  Company Number: PHEH2016US018131

PATIENT
  Sex: Female

DRUGS (1)
  1. MYFORTIC [Suspect]
     Active Substance: MYCOPHENOLATE SODIUM
     Indication: PRODUCT USED FOR UNKNOWN INDICATION
     Dosage: UNK
     Route: 058

REACTIONS (7)
  - Neck pain [Unknown]
  - Headache [Unknown]
  - Migraine [Unknown]
  - Arthralgia [Unknown]
  - Arthritis [Unknown]
  - Back pain [Unknown]
  - Malaise [Unknown]
